FAERS Safety Report 10801855 (Version 1)
Quarter: 2015Q1

REPORT INFORMATION
  Report Type: Spontaneous
  Country: AU (occurrence: AU)
  Receive Date: 20150217
  Receipt Date: 20150217
  Transmission Date: 20150721
  Serious: Yes (Other)
  Sender: FDA-Public Use
  Company Number: AU-AMGEN-AUSSP2015014255

PATIENT
  Age: 89 Year
  Sex: Female

DRUGS (3)
  1. OSTELIN                            /00107901/ [Concomitant]
     Dosage: 1000 UNKNOWN, UNK
  2. SENSIPAR [Suspect]
     Active Substance: CINACALCET HYDROCHLORIDE
     Indication: PRODUCT USED FOR UNKNOWN INDICATION
     Dosage: 30 MG, QD
     Route: 065
  3. HD [Concomitant]
     Dosage: UNK

REACTIONS (3)
  - Bone density abnormal [Unknown]
  - Hypocalcaemia [Unknown]
  - Humerus fracture [Unknown]
